FAERS Safety Report 4701775-4 (Version None)
Quarter: 2005Q2

REPORT INFORMATION
  Report Type: 
  Country: None (occurrence: None)
  Receive Date: 20050624
  Receipt Date: 20040616
  Transmission Date: 20051028
  Serious: No
  Sender: FDA-Public Use
  Company Number: M-04-200

PATIENT
  Age: 79 Year
  Sex: Female

DRUGS (8)
  1. SORINE [Suspect]
     Indication: HEART RATE IRREGULAR
     Dosage: 40 MG BID PO
     Route: 048
  2. SORINE [Suspect]
     Indication: HEART RATE IRREGULAR
     Dosage: 80 MG BID PO
     Route: 048
     Dates: start: 20040101
  3. TOPROL-XL [Concomitant]
  4. VICODIN [Concomitant]
  5. VIOXX [Concomitant]
  6. THYROID REPLACEMENT [Concomitant]
  7. PREMARIN [Concomitant]
  8. ASPIRIN [Concomitant]

REACTIONS (2)
  - COUGH [None]
  - HYPERSENSITIVITY [None]
